FAERS Safety Report 7826740-X (Version None)
Quarter: 2011Q4

REPORT INFORMATION
  Report Type: 
  Country: None (occurrence: None)
  Receive Date: 20111020
  Receipt Date: 20111016
  Transmission Date: 20120403
  Serious: Yes (Hospitalization, Other)
  Sender: FDA-Public Use
  Company Number: JP-CELGENEUS-087-21880-11043167

PATIENT
  Sex: Male
  Weight: 74 kg

DRUGS (8)
  1. AMLODIPINE [Concomitant]
     Indication: HYPERTENSION
     Dosage: 5 MILLIGRAM
     Route: 048
     Dates: start: 20110322, end: 20110419
  2. DOXAZOSIN MESILATE [Concomitant]
     Indication: HYPERTENSION
     Dosage: 1 MILLIGRAM
     Route: 048
     Dates: start: 20110322, end: 20110419
  3. REVLIMID [Suspect]
     Route: 048
     Dates: end: 20110901
  4. REVLIMID [Suspect]
     Indication: MULTIPLE MYELOMA
     Dosage: 15 MILLIGRAM
     Route: 048
     Dates: start: 20110322, end: 20110412
  5. DEXAMETHASONE [Concomitant]
     Indication: MULTIPLE MYELOMA
     Dosage: 40 MILLIGRAM
     Route: 048
     Dates: start: 20110322, end: 20110419
  6. BERIZYM [Concomitant]
     Indication: PROPHYLAXIS
     Dosage: 3 GRAM
     Route: 048
     Dates: start: 20110322, end: 20110419
  7. FAMOTIDINE [Concomitant]
     Indication: PROPHYLAXIS
     Dosage: 20 MILLIGRAM
     Route: 048
     Dates: start: 20110322, end: 20110419
  8. ASPIRIN [Concomitant]
     Indication: PROPHYLAXIS
     Dosage: 100 MILLIGRAM
     Route: 048
     Dates: start: 20110322, end: 20110419

REACTIONS (2)
  - DIFFUSE LARGE B-CELL LYMPHOMA [None]
  - RASH [None]
